FAERS Safety Report 14032061 (Version 3)
Quarter: 2018Q4

REPORT INFORMATION
  Report Type: Report from Study
  Country: JP (occurrence: JP)
  Receive Date: 20171002
  Receipt Date: 20181101
  Transmission Date: 20190204
  Serious: Yes (Death, Hospitalization, Other)
  Sender: FDA-Public Use
  Company Number: JP-INCYTE CORPORATION-2017IN000144

PATIENT

DRUGS (16)
  1. JAKAVI [Suspect]
     Active Substance: RUXOLITINIB
     Dosage: 15 MG, BID
     Route: 048
     Dates: start: 20170804, end: 20170809
  2. JAKAVI [Suspect]
     Active Substance: RUXOLITINIB
     Dosage: 25 MG, BID
     Route: 048
     Dates: start: 20170817, end: 20170913
  3. HYDREA [Concomitant]
     Active Substance: HYDROXYUREA
     Indication: INFECTION
     Dosage: 1000 MG, UNK
     Route: 048
     Dates: start: 20170824, end: 20170913
  4. HYDREA [Concomitant]
     Active Substance: HYDROXYUREA
     Indication: BONE MARROW FAILURE
     Dosage: 2000 MG, UNK
     Route: 048
     Dates: start: 20170808, end: 20170823
  5. HYDREA [Concomitant]
     Active Substance: HYDROXYUREA
     Indication: BLOOD URIC ACID INCREASED
  6. HYDREA [Concomitant]
     Active Substance: HYDROXYUREA
     Indication: C-REACTIVE PROTEIN INCREASED
  7. HYDREA [Concomitant]
     Active Substance: HYDROXYUREA
     Indication: ANAEMIA
  8. HYDREA [Concomitant]
     Active Substance: HYDROXYUREA
     Indication: PLATELET COUNT DECREASED
  9. HYDREA [Concomitant]
     Active Substance: HYDROXYUREA
     Indication: BLOOD ALKALINE PHOSPHATASE INCREASED
  10. JAKAVI [Suspect]
     Active Substance: RUXOLITINIB
     Dosage: 20 MG, BID
     Route: 048
     Dates: start: 20170810, end: 20170816
  11. JAKAVI [Suspect]
     Active Substance: RUXOLITINIB
     Indication: MYELOFIBROSIS
     Dosage: 20 MG, BID
     Route: 048
     Dates: start: 20150721, end: 20150915
  12. JAKAVI [Suspect]
     Active Substance: RUXOLITINIB
     Dosage: 15 MG, BID
     Route: 048
     Dates: start: 20160929, end: 20170720
  13. HYDREA [Concomitant]
     Active Substance: HYDROXYUREA
     Indication: HAEMORRHAGE
  14. JAKAVI [Suspect]
     Active Substance: RUXOLITINIB
     Dosage: 10 MG, BID
     Route: 048
     Dates: start: 20150915, end: 20150929
  15. HYDREA [Concomitant]
     Active Substance: HYDROXYUREA
     Indication: MYELOFIBROSIS
  16. HYDREA [Concomitant]
     Active Substance: HYDROXYUREA
     Indication: WHITE BLOOD CELL COUNT DECREASED

REACTIONS (17)
  - C-reactive protein increased [Fatal]
  - Haemorrhage [Fatal]
  - Platelet count decreased [Fatal]
  - White blood cell count decreased [Fatal]
  - Blood alkaline phosphatase increased [Not Recovered/Not Resolved]
  - Back pain [Unknown]
  - Myelofibrosis [Fatal]
  - Aspartate aminotransferase increased [Unknown]
  - Chills [Unknown]
  - Pyrexia [Unknown]
  - Infection [Not Recovered/Not Resolved]
  - Gamma-glutamyltransferase abnormal [Not Recovered/Not Resolved]
  - Bone marrow failure [Fatal]
  - Blood uric acid increased [Not Recovered/Not Resolved]
  - Anaemia [Not Recovered/Not Resolved]
  - Anaemia [Recovered/Resolved]
  - Therapeutic response decreased [Unknown]

NARRATIVE: CASE EVENT DATE: 20150901
